FAERS Safety Report 5447594-5 (Version None)
Quarter: 2007Q3

REPORT INFORMATION
  Report Type: 
  Country: None (occurrence: None)
  Receive Date: 20070910
  Receipt Date: 20070829
  Transmission Date: 20080115
  Serious: Yes (Hospitalization)
  Sender: FDA-Public Use
  Company Number: GBWYE029116JUL07

PATIENT
  Sex: Female
  Weight: 60 kg

DRUGS (3)
  1. EFFEXOR XR [Suspect]
     Indication: ANXIETY
     Route: 048
     Dates: start: 20070619
  2. EFFEXOR XR [Suspect]
     Indication: DEPRESSION
     Route: 048
  3. GOSERELIN [Concomitant]
     Indication: ENDOMETRIOSIS
     Dosage: 3.6MG, FREQUENCY NOT STATED
     Route: 058
     Dates: start: 20070808

REACTIONS (3)
  - INSOMNIA [None]
  - NIGHT SWEATS [None]
  - THROMBOSIS [None]
